FAERS Safety Report 5884899-8 (Version None)
Quarter: 2008Q3

REPORT INFORMATION
  Report Type: 
  Country: None (occurrence: None)
  Receive Date: 20080916
  Receipt Date: 20080902
  Transmission Date: 20090109
  Serious: Yes (Life-Threatening, Other)
  Sender: FDA-Public Use
  Company Number: US-ROCHE-505071

PATIENT
  Sex: Female

DRUGS (3)
  1. CAPECITABINE [Suspect]
     Dosage: GIVEN EVERY TWELVE HOURS FOR FIVE DAYS PER WEEK, STARTING ON DAY ONE TO RADIOTHERAPY.
     Route: 048
     Dates: start: 20070430
  2. BEVACIZUMAB [Suspect]
     Dosage: GIVEN OVER 30-90 MINUTES EVERY OTHER WEEK ON DAYS ONE, FIFTEEN, TWENTY-NINE DURING RT.
     Route: 042
     Dates: start: 20070430
  3. ELOXATIN [Suspect]
     Dosage: GIVEN OVER TWO HOURS EVERY WEEK ON DAYS ONE, EIGHT, FIFTEEN, TWENTY-TWO AND TWENTY-NINE DURING RADI+
     Route: 042
     Dates: start: 20070430

REACTIONS (4)
  - DIARRHOEA [None]
  - DISEASE PROGRESSION [None]
  - FATIGUE [None]
  - LARGE INTESTINE PERFORATION [None]
